FAERS Safety Report 12252079 (Version 1)
Quarter: 2016Q2

REPORT INFORMATION
  Report Type: Spontaneous
  Country: US (occurrence: None)
  Receive Date: 20160408
  Receipt Date: 20160408
  Transmission Date: 20160815
  Serious: Yes (Other)
  Sender: FDA-Public Use
  Company Number: None

PATIENT
  Age: 62 Year
  Sex: Male
  Weight: 95.9 kg

DRUGS (2)
  1. LISINOPRIL. [Suspect]
     Active Substance: LISINOPRIL
     Route: 048
     Dates: end: 20150909
  2. CEPHALEXIN. [Suspect]
     Active Substance: CEPHALEXIN
     Route: 048
     Dates: start: 20150904, end: 20150909

REACTIONS (3)
  - Lip swelling [None]
  - Angioedema [None]
  - Hypotension [None]

NARRATIVE: CASE EVENT DATE: 20150909
